FAERS Safety Report 4641787-2 (Version None)
Quarter: 2005Q2

REPORT INFORMATION
  Report Type: 
  Country: None (occurrence: None)
  Receive Date: 20050421
  Receipt Date: 20050128
  Transmission Date: 20051028
  Serious: Yes (Death, Life-Threatening, Disabling, Other)
  Sender: FDA-Public Use
  Company Number: GB-MERCK-0502GBR00010

PATIENT
  Age: 75 Year
  Sex: Female
  Weight: 68 kg

DRUGS (4)
  1. INVANZ [Suspect]
     Indication: STAPHYLOCOCCAL SEPSIS
     Route: 042
     Dates: start: 20050120, end: 20050124
  2. TINZAPARIN SODIUM [Concomitant]
     Indication: THROMBOSIS PROPHYLAXIS
     Route: 065
     Dates: start: 20050120
  3. OMEPRAZOLE [Concomitant]
     Indication: ULCER
     Route: 065
     Dates: start: 20050120, end: 20050124
  4. LINEZOLID [Concomitant]
     Route: 065
     Dates: start: 20050121, end: 20050124

REACTIONS (4)
  - CONVULSION [None]
  - RECTAL CANCER [None]
  - RESPIRATORY FAILURE [None]
  - STAPHYLOCOCCAL SEPSIS [None]
